FAERS Safety Report 18464163 (Version 1)
Quarter: 2020Q4

REPORT INFORMATION
  Report Type: Other
  Country: IT (occurrence: IT)
  Receive Date: 20201104
  Receipt Date: 20201104
  Transmission Date: 20210114
  Serious: Yes (Hospitalization, Other)
  Sender: FDA-Public Use
  Company Number: IT-VALIDUS PHARMACEUTICALS LLC-IT-2020VAL000861

PATIENT

DRUGS (7)
  1. TRIATEC                            /00885601/ [Suspect]
     Active Substance: RAMIPRIL
     Indication: HYPERTENSION
     Dosage: 1 DF, QD
     Route: 048
  2. TRIATEC                            /00885601/ [Suspect]
     Active Substance: RAMIPRIL
     Dosage: UNK
     Route: 065
  3. CORDARONE [Concomitant]
     Active Substance: AMIODARONE HYDROCHLORIDE
     Indication: PRODUCT USED FOR UNKNOWN INDICATION
     Dosage: UNK
  4. LASIX [Suspect]
     Active Substance: FUROSEMIDE
     Indication: DIURETIC THERAPY
     Dosage: 1 DF, QD
     Route: 048
     Dates: end: 20200918
  5. LASIX [Suspect]
     Active Substance: FUROSEMIDE
     Dosage: 125 MG, QD
     Route: 048
     Dates: start: 20200918, end: 20200923
  6. ZYLORIC [Concomitant]
     Active Substance: ALLOPURINOL
     Indication: PRODUCT USED FOR UNKNOWN INDICATION
     Dosage: UNK
  7. UROREC [Concomitant]
     Active Substance: SILODOSIN
     Indication: PRODUCT USED FOR UNKNOWN INDICATION
     Dosage: UNK

REACTIONS (2)
  - Drug abuse [Unknown]
  - Azotaemia [Recovering/Resolving]

NARRATIVE: CASE EVENT DATE: 20200923
